FAERS Safety Report 12530138 (Version 5)
Quarter: 2016Q3

REPORT INFORMATION
  Report Type: Report from Study
  Country: JP (occurrence: JP)
  Receive Date: 20160706
  Receipt Date: 20160912
  Transmission Date: 20161109
  Serious: Yes (Hospitalization)
  Sender: FDA-Public Use
  Company Number: JP-EISAI MEDICAL RESEARCH-EC-2016-018262

PATIENT
  Age: 51 Year
  Sex: Male
  Weight: 68 kg

DRUGS (7)
  1. LENVATINIB [Suspect]
     Active Substance: LENVATINIB
     Route: 048
     Dates: start: 20160721, end: 20160808
  2. ANTEBATE CREAM [Concomitant]
  3. UREPEARL [Concomitant]
     Active Substance: UREA
  4. ATOLANT OINTMENT [Concomitant]
  5. ISODINE [Concomitant]
     Active Substance: POVIDONE-IODINE
  6. LENVATINIB [Suspect]
     Active Substance: LENVATINIB
     Indication: BILE DUCT CANCER
     Route: 048
     Dates: start: 20160223, end: 20160628
  7. LOXOPROFEN [Concomitant]
     Active Substance: LOXOPROFEN

REACTIONS (1)
  - Lung abscess [Recovering/Resolving]

NARRATIVE: CASE EVENT DATE: 20160628
